FAERS Safety Report 4843677-9 (Version None)
Quarter: 2005Q4

REPORT INFORMATION
  Report Type: 
  Country: None (occurrence: None)
  Receive Date: 20051202
  Receipt Date: 20051110
  Transmission Date: 20060501
  Serious: Yes (Hospitalization)
  Sender: FDA-Public Use
  Company Number: 2005AP05864

PATIENT
  Age: 61 Year
  Sex: Female

DRUGS (3)
  1. MEROPEN [Suspect]
     Indication: PNEUMONIA
     Route: 041
     Dates: start: 20050831, end: 20050906
  2. DEPAKENE [Interacting]
     Indication: EPILEPSY
     Route: 048
     Dates: start: 20050601
  3. CORTRIL [Concomitant]
     Indication: HYPOPITUITARISM
     Route: 048
     Dates: start: 20050601

REACTIONS (4)
  - BLOOD PRESSURE DECREASED [None]
  - CONVULSION [None]
  - DRUG INTERACTION [None]
  - DRUG LEVEL DECREASED [None]
